FAERS Safety Report 12783736 (Version 2)
Quarter: 2017Q1

REPORT INFORMATION
  Report Type: Spontaneous
  Country: US (occurrence: US)
  Receive Date: 20160927
  Receipt Date: 20170301
  Transmission Date: 20170428
  Serious: No
  Sender: FDA-Public Use
  Company Number: US-OCTA-GAM26216US

PATIENT
  Sex: Male

DRUGS (1)
  1. OCTAGAM IMMUNE GLOBULIN (HUMAN) [Suspect]
     Active Substance: HUMAN IMMUNOGLOBULIN G
     Indication: KAWASAKI^S DISEASE
     Route: 042
     Dates: start: 20160701, end: 20160701

REACTIONS (6)
  - Urticaria [Unknown]
  - Cheilitis [None]
  - Infusion related reaction [None]
  - Rash [Unknown]
  - Pyrexia [Unknown]
  - Rash [None]

NARRATIVE: CASE EVENT DATE: 20160701
